FAERS Safety Report 7716592-0 (Version None)
Quarter: 2011Q3

REPORT INFORMATION
  Report Type: 
  Country: None (occurrence: None)
  Receive Date: 20110829
  Receipt Date: 20101019
  Transmission Date: 20111222
  Serious: No
  Sender: FDA-Public Use
  Company Number: US-GLAXOSMITHKLINE-A0847056A

PATIENT
  Age: 59 Year
  Sex: Female

DRUGS (5)
  1. VERAMYST [Suspect]
     Indication: NASAL INFLAMMATION
     Dosage: 1SPR PER DAY
     Route: 045
     Dates: start: 20070101
  2. BECONASE [Suspect]
     Indication: ILL-DEFINED DISORDER
     Dosage: 2SPR TWICE PER DAY
     Route: 045
     Dates: start: 19950101
  3. FLONASE [Suspect]
     Indication: NASAL INFLAMMATION
     Dosage: 2SPR PER DAY
     Route: 045
     Dates: start: 20000101
  4. CONCURRENT MEDICATIONS [Concomitant]
  5. UNKNOWN [Concomitant]

REACTIONS (4)
  - PRODUCT QUALITY ISSUE [None]
  - DRUG INEFFECTIVE [None]
  - EAR DISCOMFORT [None]
  - ILL-DEFINED DISORDER [None]
